FAERS Safety Report 7719843-1 (Version None)
Quarter: 2011Q3

REPORT INFORMATION
  Report Type: 
  Country: None (occurrence: None)
  Receive Date: 20110831
  Receipt Date: 20110817
  Transmission Date: 20111222
  Serious: No
  Sender: FDA-Public Use
  Company Number: US-BIOGENIDEC-2011BI032079

PATIENT
  Age: 24 Year
  Sex: Female

DRUGS (3)
  1. TYSABRI [Suspect]
     Indication: MULTIPLE SCLEROSIS
     Route: 042
     Dates: start: 20101104
  2. TYSABRI [Suspect]
     Route: 042
     Dates: start: 20090122, end: 20090224
  3. AVONEX [Concomitant]
     Indication: MULTIPLE SCLEROSIS
     Route: 030
     Dates: start: 20060714

REACTIONS (5)
  - MULTIPLE SCLEROSIS RELAPSE [None]
  - PHARYNGITIS [None]
  - THROAT IRRITATION [None]
  - ABDOMINAL PAIN UPPER [None]
  - COUGH [None]
